FAERS Safety Report 5232823-3 (Version None)
Quarter: 2007Q1

REPORT INFORMATION
  Report Type: 
  Country: None (occurrence: None)
  Receive Date: 20070206
  Receipt Date: 20070206
  Transmission Date: 20070707
  Serious: Yes (Other)
  Sender: FDA-Public Use
  Company Number: None

PATIENT
  Sex: Male
  Weight: 83.9154 kg

DRUGS (1)
  1. PAROXETINE HCL [Suspect]
     Indication: DEPRESSION
     Dosage: 1 A DAY   EVERY DAY
     Dates: start: 20000101, end: 20070125

REACTIONS (8)
  - AGGRESSION [None]
  - ANHEDONIA [None]
  - APATHY [None]
  - BALANCE DISORDER [None]
  - CHILLS [None]
  - DRUG WITHDRAWAL SYNDROME [None]
  - FEELING ABNORMAL [None]
  - SUICIDAL IDEATION [None]
